FAERS Safety Report 14665319 (Version 1)
Quarter: 2018Q1

REPORT INFORMATION
  Report Type: Spontaneous
  Country: US (occurrence: US)
  Receive Date: 20180321
  Receipt Date: 20180321
  Transmission Date: 20180509
  Serious: No
  Sender: FDA-Public Use
  Company Number: US-MATRIXX INITIATIVES, INC.-2044225

PATIENT
  Age: 57 Year
  Sex: Male
  Weight: 77.27 kg

DRUGS (2)
  1. ZICAM COLD REMEDY NASAL SWABS (HOMEOPATHICS) [Suspect]
     Active Substance: HOMEOPATHICS\ZINC ACETATE\ZINC GLUCONATE
     Indication: NASOPHARYNGITIS
     Route: 045
  2. M.V.I. (MULTI-VITAMIN INFUSION) [Concomitant]

REACTIONS (1)
  - Anosmia [None]
